FAERS Safety Report 9061280 (Version 1)
Quarter: 2013Q1

REPORT INFORMATION
  Report Type: Spontaneous
  Country: US (occurrence: None)
  Receive Date: 20130208
  Receipt Date: 20130208
  Transmission Date: 20140127
  Serious: Yes (Hospitalization)
  Sender: FDA-Public Use
  Company Number: None

PATIENT
  Age: 78 Year
  Sex: Female

DRUGS (1)
  1. AFINITOR [Suspect]
     Route: 048
     Dates: start: 20121126

REACTIONS (8)
  - Local swelling [None]
  - Local swelling [None]
  - Epistaxis [None]
  - Pain in extremity [None]
  - Haemorrhage [None]
  - Feeling cold [None]
  - Herpes zoster [None]
  - Back pain [None]
